FAERS Safety Report 4920014-2 (Version None)
Quarter: 2006Q1

REPORT INFORMATION
  Report Type: 
  Country: None (occurrence: None)
  Receive Date: 20060217
  Receipt Date: 20060201
  Transmission Date: 20060701
  Serious: Yes (Hospitalization, Other)
  Sender: FDA-Public Use
  Company Number: GBR-2006-0002104

PATIENT
  Age: 93 Year
  Sex: Male

DRUGS (7)
  1. MORPHINE SULFATE [Suspect]
     Indication: PAIN
  2. MORPHINE SULFATE [Suspect]
     Indication: PAIN
  3. ENALAPRIL MALEATE [Concomitant]
  4. FERO-GRAD LP (FERROUS SULFATE, ASCORBIC ACID) [Concomitant]
  5. LACTULOSE [Concomitant]
  6. ACETAMINOPHEN [Concomitant]
  7. DICLOFENAC (DICLOFENAC) [Concomitant]

REACTIONS (5)
  - BRONCHITIS [None]
  - DEHYDRATION [None]
  - DELIRIUM [None]
  - RENAL IMPAIRMENT [None]
  - URINARY RETENTION [None]
